FAERS Safety Report 11678579 (Version 3)
Quarter: 2015Q4

REPORT INFORMATION
  Report Type: Spontaneous
  Country: US (occurrence: US)
  Receive Date: 20151028
  Receipt Date: 20151211
  Transmission Date: 20160304
  Serious: Yes (Hospitalization, Other)
  Sender: FDA-Public Use
  Company Number: US-GILEAD-2015-0178781

PATIENT
  Age: 49 Year
  Sex: Female
  Weight: 63 kg

DRUGS (11)
  1. MAG OXIDE [Concomitant]
     Active Substance: MAGNESIUM OXIDE
  2. SPIRONOLACTONE. [Concomitant]
     Active Substance: SPIRONOLACTONE
  3. SOVALDI [Suspect]
     Active Substance: SOFOSBUVIR
     Indication: HEPATITIS C
     Dosage: UNK
     Route: 065
     Dates: start: 20150728, end: 20151015
  4. METOLAZONE. [Concomitant]
     Active Substance: METOLAZONE
  5. RIBAVIRIN. [Suspect]
     Active Substance: RIBAVIRIN
     Dosage: 800 MG, UNK
     Route: 065
     Dates: start: 20150908, end: 20151007
  6. LEVOTHYROXINE. [Concomitant]
     Active Substance: LEVOTHYROXINE
     Indication: HYPOTHYROIDISM
  7. MICROGESTIN [Concomitant]
     Active Substance: ETHINYL ESTRADIOL\NORETHINDRONE ACETATE
  8. POTASSIUM CHLORIDE. [Concomitant]
     Active Substance: POTASSIUM CHLORIDE
  9. TORSEMIDE. [Concomitant]
     Active Substance: TORSEMIDE
  10. RIBAVIRIN. [Suspect]
     Active Substance: RIBAVIRIN
     Indication: HEPATITIS C
     Dosage: 1000 MG, UNK
     Route: 065
     Dates: start: 20150728, end: 20151007
  11. COUMADIN [Concomitant]
     Active Substance: WARFARIN SODIUM
     Indication: THROMBOSIS PROPHYLAXIS

REACTIONS (3)
  - Cardiac failure congestive [Recovering/Resolving]
  - Tricuspid valve incompetence [Not Recovered/Not Resolved]
  - Haemoglobin decreased [Not Recovered/Not Resolved]

NARRATIVE: CASE EVENT DATE: 201510
